FAERS Safety Report 11190551 (Version 1)
Quarter: 2015Q2

REPORT INFORMATION
  Report Type: Report from Study
  Country: US (occurrence: None)
  Receive Date: 20150603
  Receipt Date: 20150603
  Transmission Date: 20150821
  Serious: No
  Sender: FDA-Public Use
  Company Number: 2015TASUS000688

PATIENT
  Age: 73 Year
  Sex: Female
  Weight: 105.7 kg

DRUGS (23)
  1. CRANBERRY (CRANBERRY) [Concomitant]
  2. IRON (ASCORBIC ACID, BETAINE HYDROCHLORIDE, COPPER, CYANOCOBALAMIN, FOLIC ACID, IRON, MANGANESE, NICOTINAMIDE, PYRIDOXINE HYDROCHLORIDE, RIBOFLAVIN, THIAMINE HYDROCHLORIDE) [Concomitant]
  3. AMLODIPINE (AMLODIPINE BESILATE) [Concomitant]
  4. LANTUS [Concomitant]
     Active Substance: INSULIN GLARGINE
  5. ATORVASTATIN (ATORVASTATIN CALCIUM) [Concomitant]
  6. ASPIRIN (ACETYLSALICYLIC ACID) [Concomitant]
     Active Substance: ASPIRIN
  7. GINKGO BILOBA (GINKGO BILOBA) [Concomitant]
     Active Substance: GINKGO
  8. ALPHA LIPOIC ACID (ALPHA LIPOIC ACID) [Concomitant]
  9. NITROFURANTOIN MONOHYDRATE/MACROCRYSTALS (NITROFURANTOIN MONOHYDRATE) [Concomitant]
  10. ALBUTEROL (SALBUTAMOL SULFATE) [Concomitant]
  11. HYDROCHLOROTHIAZIDE 1A PHARMA (HYDROCHLOROTHIAZIDE) [Concomitant]
  12. NOVOLOG [Concomitant]
     Active Substance: INSULIN ASPART
  13. LISINOPRIL (LISINOPRIL DIHYDRATE) (UNKNOWN [Concomitant]
     Active Substance: LISINOPRIL
  14. CINNAMON (CINNAMON) [Concomitant]
  15. D3 (COLECALCIFEROL) [Concomitant]
  16. SERTRALINE [Concomitant]
     Active Substance: SERTRALINE HYDROCHLORIDE
  17. LUTEIN (LUTEIN) [Concomitant]
  18. MULTIVITAMIN (ASCORBIC ACID, CALCIUM PANTOTHENATE, CYANOCOBALAMIN, NICOTINAMIDE, PYRIDOXINE HYDROCHLORIDE, RIBOFLAVIN, THIAMINE MONONITRATE, TOCOPHERYL ACETATE) [Concomitant]
  19. HETLIOZ [Suspect]
     Active Substance: TASIMELTEON
     Indication: CIRCADIAN RHYTHM SLEEP DISORDER
     Dosage: AT NIGHT
     Route: 048
     Dates: start: 20141223
  20. CALCIUM (ASCORBIC ACID, CALCIUM LACTATE GLUCONATE) [Concomitant]
  21. NADOLOL (NADOLOL) [Concomitant]
     Active Substance: NADOLOL
  22. CHROMIUM PICOLINATE (CHROMIUM PICOLINATE) [Concomitant]
  23. B12 (CYANOCOBALAMIN) [Concomitant]

REACTIONS (4)
  - Drug ineffective [None]
  - Blood pressure diastolic decreased [None]
  - Constipation [None]
  - Sleep apnoea syndrome [None]

NARRATIVE: CASE EVENT DATE: 201501
